FAERS Safety Report 5633278-7 (Version None)
Quarter: 2008Q1

REPORT INFORMATION
  Report Type: 
  Country: None (occurrence: None)
  Receive Date: 20080221
  Receipt Date: 20080214
  Transmission Date: 20080703
  Serious: Yes (Hospitalization, Other)
  Sender: FDA-Public Use
  Company Number: US-MERCK-0705USA00818

PATIENT
  Age: 55 Year
  Sex: Female

DRUGS (3)
  1. FOSAMAX [Suspect]
     Indication: OSTEOPOROSIS PROPHYLAXIS
     Route: 048
     Dates: start: 20060516, end: 20060917
  2. ALPRAZOLAM [Concomitant]
     Route: 065
  3. PAROXETINE [Concomitant]
     Route: 065

REACTIONS (13)
  - DIVERTICULUM [None]
  - DIZZINESS [None]
  - FATIGUE [None]
  - GASTRITIS [None]
  - GINGIVAL INFECTION [None]
  - GINGIVAL PAIN [None]
  - HIATUS HERNIA [None]
  - OESOPHAGITIS [None]
  - OSTEONECROSIS [None]
  - RECTAL HAEMORRHAGE [None]
  - SINUS CONGESTION [None]
  - TINNITUS [None]
  - TOOTH FRACTURE [None]
